FAERS Safety Report 10303457 (Version 2)
Quarter: 2014Q3

REPORT INFORMATION
  Report Type: Spontaneous
  Country: US (occurrence: US)
  Receive Date: 20140714
  Receipt Date: 20140714
  Transmission Date: 20150326
  Serious: Yes (Hospitalization, Other)
  Sender: FDA-Public Use
  Company Number: US-009507513-2011SP016578

PATIENT
  Sex: Female
  Weight: 89.81 kg

DRUGS (1)
  1. NUVARING [Suspect]
     Active Substance: ETHINYL ESTRADIOL\ETONOGESTREL
     Indication: CONTRACEPTION
     Route: 067
     Dates: start: 20090409, end: 20090424

REACTIONS (10)
  - Pulmonary embolism [Unknown]
  - Emotional disorder [Unknown]
  - Joint injury [Unknown]
  - Urinary tract infection [Not Recovered/Not Resolved]
  - Hypercoagulation [Unknown]
  - Pulmonary valve incompetence [Unknown]
  - Limb discomfort [Unknown]
  - Mental disorder [Unknown]
  - Leukocytosis [Recovering/Resolving]
  - Gastrooesophageal reflux disease [Unknown]

NARRATIVE: CASE EVENT DATE: 2009
